FAERS Safety Report 8570527-X (Version None)
Quarter: 2012Q3

REPORT INFORMATION
  Report Type: 
  Country: None (occurrence: None)
  Receive Date: 20120803
  Receipt Date: 20120723
  Transmission Date: 20120928
  Serious: No
  Sender: FDA-Public Use
  Company Number: US-ASTRAZENECA-2012SE51654

PATIENT
  Sex: Male

DRUGS (7)
  1. NEXIUM [Suspect]
     Indication: OESOPHAGITIS
     Route: 048
     Dates: start: 20070101
  2. NEXIUM [Suspect]
     Route: 048
     Dates: start: 20120505, end: 20120701
  3. NEXIUM [Suspect]
     Route: 048
     Dates: start: 20120505, end: 20120701
  4. NEXIUM [Suspect]
     Route: 048
     Dates: start: 20120701
  5. PEPCID [Concomitant]
     Indication: OESOPHAGITIS
  6. NEXIUM [Suspect]
     Route: 048
     Dates: start: 20120701
  7. NEXIUM [Suspect]
     Indication: GASTROOESOPHAGEAL REFLUX DISEASE
     Route: 048
     Dates: start: 20070101

REACTIONS (3)
  - OFF LABEL USE [None]
  - OESOPHAGITIS [None]
  - DYSGEUSIA [None]
